FAERS Safety Report 9116873 (Version 3)
Quarter: 2013Q4

REPORT INFORMATION
  Report Type: Spontaneous
  Country: JP (occurrence: JP)
  Receive Date: 20130225
  Receipt Date: 20131106
  Transmission Date: 20140711
  Serious: No
  Sender: FDA-Public Use
  Company Number: PHHY2013JP017695

PATIENT
  Age: 59 Year
  Sex: Female
  Weight: 56 kg

DRUGS (2)
  1. ZOMETA [Suspect]
     Indication: METASTASES TO BONE
     Route: 041
     Dates: start: 200708, end: 20120531
  2. RANMARK [Concomitant]
     Dates: start: 20120531

REACTIONS (3)
  - Osteonecrosis of jaw [Unknown]
  - Exposed bone in jaw [Unknown]
  - Bone pain [Unknown]
